FAERS Safety Report 14021003 (Version 1)
Quarter: 2017Q3

REPORT INFORMATION
  Report Type: Spontaneous
  Country: US (occurrence: US)
  Receive Date: 20170928
  Receipt Date: 20170928
  Transmission Date: 20171128
  Serious: No
  Sender: FDA-Public Use
  Company Number: US-ROCHE-792409

PATIENT
  Age: 61 Year
  Sex: Female
  Weight: 81.6 kg

DRUGS (1)
  1. MABTHERA [Suspect]
     Active Substance: RITUXIMAB
     Indication: RHEUMATOID ARTHRITIS
     Dosage: DAY 0, 2 WEEKS
     Route: 042

REACTIONS (4)
  - Pain [Unknown]
  - Burning sensation [Recovering/Resolving]
  - Burning sensation [Recovered/Resolved]
  - Pain in extremity [Recovering/Resolving]

NARRATIVE: CASE EVENT DATE: 20110629
